FAERS Safety Report 19935922 (Version 5)
Quarter: 2022Q2

REPORT INFORMATION
  Report Type: Report from Study
  Country: BR (occurrence: BR)
  Receive Date: 20211009
  Receipt Date: 20220603
  Transmission Date: 20220720
  Serious: Yes (Other)
  Sender: FDA-Public Use
  Company Number: NVSC2020BR262223

PATIENT
  Age: 53 Year
  Sex: Female

DRUGS (2)
  1. COSENTYX [Suspect]
     Active Substance: SECUKINUMAB
     Indication: Psoriasis
     Dosage: 300 MG, UNKNOWN
     Route: 065
     Dates: start: 20200403
  2. COSENTYX [Suspect]
     Active Substance: SECUKINUMAB
     Indication: Arthritis

REACTIONS (22)
  - Oropharyngeal candidiasis [Recovered/Resolved]
  - Immunosuppression [Recovering/Resolving]
  - Lentigo [Not Recovered/Not Resolved]
  - Pain [Recovering/Resolving]
  - Fatigue [Recovering/Resolving]
  - Arthralgia [Unknown]
  - Pain in extremity [Unknown]
  - Capillary fragility [Unknown]
  - Bradyphrenia [Not Recovered/Not Resolved]
  - Headache [Unknown]
  - Limb injury [Unknown]
  - Trigger finger [Unknown]
  - Movement disorder [Unknown]
  - Stress [Unknown]
  - Feeling abnormal [Unknown]
  - Influenza [Recovering/Resolving]
  - Nasal congestion [Recovering/Resolving]
  - Cough [Recovering/Resolving]
  - Laziness [Recovering/Resolving]
  - Catarrh [Recovering/Resolving]
  - Bursitis [Unknown]
  - Product use in unapproved indication [Unknown]

NARRATIVE: CASE EVENT DATE: 20200701
